FAERS Safety Report 8968871 (Version 2)
Quarter: 2012Q4

REPORT INFORMATION
  Report Type: 
  Country: US (occurrence: US)
  Receive Date: 20121218
  Receipt Date: 20121226
  Transmission Date: 20130627
  Serious: No
  Sender: FDA-Public Use
  Company Number: US-PFIZER INC-2012310093

PATIENT
  Age: 53 Year
  Sex: Male
  Weight: 90.7 kg

DRUGS (3)
  1. SUTENT [Suspect]
     Indication: METASTATIC RENAL CELL CARCINOMA
     Dosage: 50 mg, 1x/day
     Route: 048
     Dates: start: 20121001, end: 20121114
  2. SUTENT [Suspect]
     Dosage: 50 mg, 1x/day
     Route: 048
     Dates: start: 20121118
  3. PRILOSEC [Concomitant]
     Dosage: 20 mg, 2x/day

REACTIONS (8)
  - Disease progression [Unknown]
  - Metastatic renal cell carcinoma [Unknown]
  - Eye swelling [Unknown]
  - Blood test abnormal [Unknown]
  - Drug administration error [Unknown]
  - Fatigue [Unknown]
  - Dry skin [Unknown]
  - Nausea [Unknown]
